FAERS Safety Report 5526116-4 (Version None)
Quarter: 2007Q4

REPORT INFORMATION
  Report Type: 
  Country: None (occurrence: None)
  Receive Date: 20071120
  Receipt Date: 20071105
  Transmission Date: 20080405
  Serious: Yes (Other)
  Sender: FDA-Public Use
  Company Number: 2007S1011501

PATIENT
  Age: 65 Year
  Sex: Female

DRUGS (11)
  1. WARFARIN SODIUM [Suspect]
     Dosage: ORAL
     Route: 048
     Dates: start: 20060301
  2. WARFARIN SODIUM [Suspect]
     Dosage: ORAL
     Route: 048
     Dates: start: 20060301
  3. AMITRIPTYLINE HCL [Concomitant]
  4. AMLODIPINE [Concomitant]
  5. BENDROFLUAZIDE (BENDROFLUMETHIAZIDE) [Concomitant]
  6. BETAHISTINE (BETAHISTINE) [Concomitant]
  7. QUINAPRIL HCL [Concomitant]
  8. QUININE SULFATE [Concomitant]
  9. LEVOTHYROXINE SODIUM [Concomitant]
  10. ZOPICLONE (ZOPICLONE) [Concomitant]
  11. LANSOPRAZOLE [Concomitant]

REACTIONS (1)
  - BURNING SENSATION [None]
